FAERS Safety Report 12656542 (Version 3)
Quarter: 2016Q4

REPORT INFORMATION
  Report Type: Spontaneous
  Country: DE (occurrence: DE)
  Receive Date: 20160816
  Receipt Date: 20161124
  Transmission Date: 20170207
  Serious: Yes (Hospitalization)
  Sender: FDA-Public Use
  Company Number: DE-JNJFOC-20160801999

PATIENT
  Age: 2 Decade
  Sex: Male
  Weight: 65.5 kg

DRUGS (11)
  1. NOVAMINSULFON [Suspect]
     Active Substance: METAMIZOLE
     Indication: PAIN
     Route: 048
     Dates: start: 20160701, end: 20160705
  2. IBUPROFEN. [Suspect]
     Active Substance: IBUPROFEN
     Indication: PYREXIA
     Route: 048
     Dates: start: 20160702, end: 20160706
  3. NOVAMINSULFON [Suspect]
     Active Substance: METAMIZOLE
     Indication: PYREXIA
     Route: 048
     Dates: start: 20160702, end: 20160706
  4. IBEROGAST [Concomitant]
     Active Substance: HERBALS
     Indication: PRODUCT USED FOR UNKNOWN INDICATION
     Route: 065
  5. PANTOPRAZOLE [Concomitant]
     Active Substance: PANTOPRAZOLE SODIUM
     Indication: PRODUCT USED FOR UNKNOWN INDICATION
     Route: 065
  6. NOVAMINSULFON [Suspect]
     Active Substance: METAMIZOLE
     Indication: PAIN
     Route: 048
     Dates: start: 20160702, end: 20160706
  7. METOCLOPRAMIDE HYDROCHLORIDE. [Concomitant]
     Active Substance: METOCLOPRAMIDE HYDROCHLORIDE
     Indication: NAUSEA
     Route: 048
  8. BUSCOPAN [Concomitant]
     Active Substance: BUTYLSCOPOLAMINE BROMIDE
     Indication: ABDOMINAL PAIN
     Route: 048
  9. IBUPROFEN. [Suspect]
     Active Substance: IBUPROFEN
     Indication: PAIN
     Route: 048
     Dates: start: 20160702, end: 20160706
  10. VOMEX A [Concomitant]
     Active Substance: DIMENHYDRINATE
     Indication: NAUSEA
     Route: 054
     Dates: start: 20160704
  11. NOVAMINSULFON [Suspect]
     Active Substance: METAMIZOLE
     Indication: PYREXIA
     Route: 048
     Dates: start: 20160701, end: 20160705

REACTIONS (3)
  - Acute kidney injury [Recovering/Resolving]
  - Nephritis [Unknown]
  - Overdose [Recovering/Resolving]

NARRATIVE: CASE EVENT DATE: 20160702
